FAERS Safety Report 14757199 (Version 2)
Quarter: 2018Q4

REPORT INFORMATION
  Report Type: Report from Study
  Country: CA (occurrence: CA)
  Receive Date: 20180413
  Receipt Date: 20181121
  Transmission Date: 20190204
  Serious: Yes (Disabling, Other)
  Sender: FDA-Public Use
  Company Number: CA-JNJFOC-20180407942

PATIENT
  Age: 55 Year
  Sex: Female
  Weight: 81.65 kg

DRUGS (2)
  1. REMICADE [Suspect]
     Active Substance: INFLIXIMAB
     Indication: COLITIS ULCERATIVE
     Route: 042
     Dates: start: 20150920
  2. REMICADE [Suspect]
     Active Substance: INFLIXIMAB
     Indication: COLITIS ULCERATIVE
     Dosage: STRENGTH = 100 MG
     Route: 042
     Dates: start: 20151015

REACTIONS (8)
  - Nephrolithiasis [Unknown]
  - Hypertension [Unknown]
  - Pruritus [Recovering/Resolving]
  - Cystitis [Unknown]
  - Off label use [Unknown]
  - Incorrect dose administered [Unknown]
  - Myalgia [Not Recovered/Not Resolved]
  - Asthenia [Not Recovered/Not Resolved]

NARRATIVE: CASE EVENT DATE: 20150920
